FAERS Safety Report 20947125 (Version 2)
Quarter: 2023Q1

REPORT INFORMATION
  Report Type: Spontaneous
  Country: US (occurrence: US)
  Receive Date: 20220610
  Receipt Date: 20230306
  Transmission Date: 20230417
  Serious: Yes (Hospitalization, Other)
  Sender: FDA-Public Use
  Company Number: US-ALLERGAN-2218254US

PATIENT
  Sex: Female
  Weight: 61.235 kg

DRUGS (4)
  1. QULIPTA [Suspect]
     Active Substance: ATOGEPANT
     Indication: Migraine prophylaxis
     Dosage: 60 MG, QD
     Route: 048
     Dates: start: 20220501, end: 20220522
  2. QULIPTA [Suspect]
     Active Substance: ATOGEPANT
     Dosage: 60 MG, QD
     Route: 048
     Dates: start: 20220301, end: 20220415
  3. IBUPROFEN [Concomitant]
     Active Substance: IBUPROFEN
     Indication: Migraine
     Dosage: DOSE- 800 UNK, TID PRN
     Dates: start: 2015
  4. EXCEDRIN [Concomitant]
     Active Substance: ACETAMINOPHEN\ASPIRIN\CAFFEINE
     Indication: Migraine
     Dosage: UNK
     Dates: start: 2015

REACTIONS (7)
  - Loss of consciousness [Recovered/Resolved with Sequelae]
  - Polymenorrhoea [Recovered/Resolved with Sequelae]
  - Uterine haemorrhage [Recovered/Resolved with Sequelae]
  - Uterine enlargement [Recovered/Resolved with Sequelae]
  - Uterine leiomyoma [Recovered/Resolved with Sequelae]
  - Haemoglobin decreased [Recovered/Resolved with Sequelae]
  - Migraine [Unknown]

NARRATIVE: CASE EVENT DATE: 20220401
